FAERS Safety Report 20300121 (Version 1)
Quarter: 2022Q1

REPORT INFORMATION
  Report Type: Spontaneous
  Country: HU (occurrence: HU)
  Receive Date: 20220105
  Receipt Date: 20220105
  Transmission Date: 20220423
  Serious: Yes (Life-Threatening, Hospitalization, Other)
  Sender: FDA-Public Use
  Company Number: None

PATIENT
  Age: 27 Year
  Sex: Female
  Weight: 70 kg

DRUGS (4)
  1. AVELOX [Suspect]
     Active Substance: MOXIFLOXACIN HYDROCHLORIDE
     Indication: COVID-19 pneumonia
     Dosage: 400 MG, QD
     Route: 048
     Dates: start: 20211116, end: 20211130
  2. VAXZEVRIA [Suspect]
     Active Substance: AZD-1222
     Indication: COVID-19 immunisation
     Dosage: 0.5 ML, ONCE
     Route: 030
     Dates: start: 202106, end: 202106
  3. LEVIL [Concomitant]
     Indication: Epilepsy
     Route: 048
     Dates: start: 2012
  4. AFLAMIN RAPID [Concomitant]
     Indication: COVID-19 pneumonia
     Dosage: 100 MG, QD
     Route: 048
     Dates: start: 20211106, end: 20211130

REACTIONS (3)
  - Generalised tonic-clonic seizure [Recovered/Resolved]
  - Vaccination failure [Recovered/Resolved]
  - Dysgeusia [Recovered/Resolved]

NARRATIVE: CASE EVENT DATE: 20211013
